FAERS Safety Report 12447592 (Version 1)
Quarter: 2016Q2

REPORT INFORMATION
  Report Type: Spontaneous
  Country: FR (occurrence: FR)
  Receive Date: 20160608
  Receipt Date: 20160608
  Transmission Date: 20160815
  Serious: Yes (Hospitalization)
  Sender: FDA-Public Use
  Company Number: FR-VIFOR (INTERNATIONAL) INC.-VIT-2016-02605

PATIENT
  Age: 66 Year
  Sex: Female

DRUGS (15)
  1. MYFORTIC [Suspect]
     Active Substance: MYCOPHENOLATE SODIUM
     Indication: IMMUNOSUPPRESSANT DRUG THERAPY
  2. LASIX [Concomitant]
     Active Substance: FUROSEMIDE
  3. ELISOR [Concomitant]
     Active Substance: PRAVASTATIN SODIUM
  4. CALDINE [Concomitant]
  5. KARDEGIC [Concomitant]
     Active Substance: ASPIRIN LYSINE
  6. MIRCERA [Suspect]
     Active Substance: METHOXY POLYETHYLENE GLYCOL-EPOETIN BETA
     Indication: NEPHROGENIC ANAEMIA
     Route: 065
     Dates: start: 20160316, end: 20160316
  7. MYFORTIC [Suspect]
     Active Substance: MYCOPHENOLATE SODIUM
     Indication: PROPHYLAXIS AGAINST TRANSPLANT REJECTION
     Route: 048
     Dates: start: 2007, end: 20160419
  8. ATENOLOL. [Concomitant]
     Active Substance: ATENOLOL
  9. KAYEXALATE [Concomitant]
     Active Substance: SODIUM POLYSTYRENE SULFONATE
     Dosage: 15 G/L
  10. UVEDOSE [Concomitant]
     Active Substance: CHOLECALCIFEROL
  11. ADVAGRAF [Concomitant]
     Active Substance: TACROLIMUS
     Dosage: WITH IMMUNOSUPPRESSANT
     Route: 048
     Dates: start: 2007
  12. ODRIK [Concomitant]
     Active Substance: TRANDOLAPRIL
  13. SPIRONOLACTONE. [Concomitant]
     Active Substance: SPIRONOLACTONE
  14. CORTANCYL [Concomitant]
     Active Substance: PREDNISONE
     Dosage: WITH IMMUNOSUPPRESSANT DRUG
     Route: 048
     Dates: start: 2007
  15. MOPRAL [Concomitant]
     Active Substance: OMEPRAZOLE SODIUM

REACTIONS (4)
  - Aphthous ulcer [Recovering/Resolving]
  - Leukopenia [Recovered/Resolved]
  - Oral candidiasis [Unknown]
  - Agranulocytosis [Recovered/Resolved]

NARRATIVE: CASE EVENT DATE: 20160414
